FAERS Safety Report 10152240 (Version 3)
Quarter: 2014Q3

REPORT INFORMATION
  Report Type: Spontaneous
  Country: JP (occurrence: JP)
  Receive Date: 20140505
  Receipt Date: 20140930
  Transmission Date: 20150326
  Serious: Yes (Other)
  Sender: FDA-Public Use
  Company Number: PHHY2014JP053878

PATIENT
  Sex: Female

DRUGS (1)
  1. ZOMETA [Suspect]
     Active Substance: ZOLEDRONIC ACID
     Indication: METASTASES TO BONE
     Dosage: 4 MG (PER ADMINISTRATION)
     Route: 041
     Dates: start: 201403

REACTIONS (5)
  - Femur fracture [Recovering/Resolving]
  - Malignant neoplasm progression [Unknown]
  - Metastases to bone [Unknown]
  - Colon cancer [Unknown]
  - Fall [Unknown]

NARRATIVE: CASE EVENT DATE: 201404
